FAERS Safety Report 15419099 (Version 1)
Quarter: 2018Q3

REPORT INFORMATION
  Report Type: Spontaneous
  Country: US (occurrence: US)
  Receive Date: 20180924
  Receipt Date: 20180924
  Transmission Date: 20181010
  Serious: Yes (Other)
  Sender: FDA-Public Use
  Company Number: US-UNITED THERAPEUTICS-UNT-2018-015086

PATIENT
  Age: 30 Year
  Sex: Female
  Weight: 58.96 kg

DRUGS (1)
  1. REMODULIN [Suspect]
     Active Substance: TREPROSTINIL
     Indication: PULMONARY ARTERIAL HYPERTENSION
     Dosage: 0.076 ?G/KG, CONTINUING
     Route: 041
     Dates: start: 20180605

REACTIONS (9)
  - Loss of consciousness [Unknown]
  - Presyncope [Unknown]
  - Hyperhidrosis [Unknown]
  - Vomiting [Unknown]
  - Dizziness [Unknown]
  - Nausea [Unknown]
  - Urinary incontinence [Unknown]
  - Complication associated with device [Unknown]
  - Device issue [Unknown]

NARRATIVE: CASE EVENT DATE: 2018
